FAERS Safety Report 4804122-2 (Version None)
Quarter: 2005Q4

REPORT INFORMATION
  Report Type: 
  Country: None (occurrence: None)
  Receive Date: 20051011
  Receipt Date: 20051011
  Transmission Date: 20060501
  Serious: Yes (Other)
  Sender: FDA-Public Use
  Company Number: None

PATIENT
  Age: 53 Year
  Sex: Male
  Weight: 87.0906 kg

DRUGS (2)
  1. RISPERDAL [Suspect]
     Indication: DIABETES MELLITUS
     Dosage: 2 TIMES A DAY
     Dates: start: 20030101, end: 20050101
  2. RISPERDAL [Suspect]
     Indication: MUSCLE TWITCHING
     Dosage: 2 TIMES A DAY
     Dates: start: 20030101, end: 20050101

REACTIONS (5)
  - DIABETES MELLITUS [None]
  - DYSKINESIA [None]
  - METABOLIC DISORDER [None]
  - MUSCLE SPASMS [None]
  - MUSCLE TWITCHING [None]
